FAERS Safety Report 8089085-1 (Version None)
Quarter: 2012Q1

REPORT INFORMATION
  Report Type: 
  Country: None (occurrence: None)
  Receive Date: 20120128
  Receipt Date: 20110624
  Transmission Date: 20120608
  Serious: No
  Sender: FDA-Public Use
  Company Number: US-ABBOTT-11P-163-0834477-00

PATIENT
  Age: 69 Year
  Sex: Female

DRUGS (11)
  1. HUMIRA [Suspect]
     Indication: RHEUMATOID ARTHRITIS
     Dates: start: 20101029, end: 20110617
  2. CLARITIN [Concomitant]
     Indication: ASTHMA
     Dosage: 10 MG - DAILY
  3. HUMIRA [Suspect]
     Dates: start: 20110624
  4. FORADIL [Concomitant]
     Indication: ASTHMA
     Dosage: 12 MG - AS NEEDED
     Route: 055
  5. BONIVA [Concomitant]
     Indication: OSTEOPOROSIS
     Dosage: 150 MG - MONTHLY
  6. SINGULAIR [Concomitant]
     Indication: ASTHMA
     Dosage: 10 MG - DAILY
  7. STOOL SOFTENER [Concomitant]
     Indication: PRODUCT USED FOR UNKNOWN INDICATION
     Dosage: DAILY
  8. VITAMIN D [Concomitant]
     Indication: PRODUCT USED FOR UNKNOWN INDICATION
     Dosage: 30,000 UNITS - WEEKLY
  9. PREDNISONE TAB [Concomitant]
     Indication: PRODUCT USED FOR UNKNOWN INDICATION
     Dosage: 5 MG - DAILY
  10. VOLTAREN [Concomitant]
     Indication: ARTHRALGIA
  11. IRON [Concomitant]
     Indication: PRODUCT USED FOR UNKNOWN INDICATION
     Dosage: DAILY

REACTIONS (12)
  - BLOOD URINE PRESENT [None]
  - LOCALISED INFECTION [None]
  - FALL [None]
  - TOOTH DISORDER [None]
  - UPPER RESPIRATORY TRACT CONGESTION [None]
  - UMBILICAL HERNIA [None]
  - SWELLING FACE [None]
  - DRUG DOSE OMISSION [None]
  - ARTHRALGIA [None]
  - CONTUSION [None]
  - LOWER RESPIRATORY TRACT INFECTION [None]
  - SWELLING [None]
